FAERS Safety Report 8763478 (Version 2)
Quarter: 2012Q4

REPORT INFORMATION
  Report Type: 
  Country: US (occurrence: US)
  Receive Date: 20120831
  Receipt Date: 20121015
  Transmission Date: 20130627
  Serious: Yes (Hospitalization)
  Sender: FDA-Public Use
  Company Number: US-BIOGENIDEC-2012BI033143

PATIENT
  Age: 43 Year
  Sex: Female

DRUGS (4)
  1. AVONEX [Suspect]
     Indication: MULTIPLE SCLEROSIS
     Route: 030
     Dates: start: 20000601
  2. AVONEX [Suspect]
     Indication: MULTIPLE SCLEROSIS
     Route: 030
     Dates: end: 20050515
  3. AVONEX [Suspect]
     Indication: MULTIPLE SCLEROSIS
     Route: 030
     Dates: start: 20060529, end: 20080201
  4. AVONEX [Suspect]
     Indication: MULTIPLE SCLEROSIS
     Route: 030
     Dates: start: 20090214, end: 201104

REACTIONS (9)
  - Intervertebral disc disorder [Recovered/Resolved]
  - Arthritis infective [Recovered/Resolved]
  - Hypertension [Recovered/Resolved]
  - Visual acuity reduced [Not Recovered/Not Resolved]
  - Glaucoma [Recovered/Resolved]
  - Cataract [Recovered/Resolved]
  - Blindness [Not Recovered/Not Resolved]
  - Visual impairment [Not Recovered/Not Resolved]
  - Iritis [Not Recovered/Not Resolved]
